FAERS Safety Report 16210982 (Version 2)
Quarter: 2019Q3

REPORT INFORMATION
  Report Type: Spontaneous
  Country: IT (occurrence: IT)
  Receive Date: 20190418
  Receipt Date: 20190701
  Transmission Date: 20191004
  Serious: Yes (Other)
  Sender: FDA-Public Use
  Company Number: IT-ACCORD-121945

PATIENT
  Age: 75 Year
  Sex: Female
  Weight: 68 kg

DRUGS (13)
  1. LEVOLEUCOVORIN. [Concomitant]
     Active Substance: LEVOLEUCOVORIN
     Indication: ADENOCARCINOMA OF COLON
     Dosage: ALSO TAKEN 268 MG FROM 16-JUL-2018 TO 18-SEP-2018
     Route: 042
     Dates: start: 20180326, end: 20180611
  2. OXALIPLATIN. [Suspect]
     Active Substance: OXALIPLATIN
     Indication: ADENOCARCINOMA OF COLON
     Dosage: DATE OF LAST ADMINISTRATION: 18-SEP-2018
     Route: 042
     Dates: start: 20180716
  3. ERBITUX [Suspect]
     Active Substance: CETUXIMAB
     Indication: ADENOCARCINOMA OF COLON
     Dosage: DATE OF LAST ADMINISTRATION: 11-JUN-2018
     Route: 042
     Dates: start: 20180326
  4. AVASTIN [Suspect]
     Active Substance: BEVACIZUMAB
     Indication: ADENOCARCINOMA OF COLON
     Dosage: DATE OF LAST ADMINISTRATION: 18-SEP-2018
     Route: 042
     Dates: start: 20180716
  5. PANTOPRAZOLE [Concomitant]
     Active Substance: PANTOPRAZOLE
  6. DAPAROX [Concomitant]
     Active Substance: PAROXETINE
  7. LOBIDIUR [Concomitant]
     Active Substance: HYDROCHLOROTHIAZIDE\NEBIVOLOL HYDROCHLORIDE
  8. CARDIOASPIRIN [Concomitant]
     Active Substance: ASPIRIN
  9. FLUOROURACIL. [Suspect]
     Active Substance: FLUOROURACIL
     Indication: ADENOCARCINOMA OF COLON
     Dosage: ALSO TAKEN FROM 16-JUL-2018 TO 18-SEP-2018
     Route: 042
     Dates: start: 20180326
  10. ATORVASTATIN [Concomitant]
     Active Substance: ATORVASTATIN
  11. TRIATEC [Concomitant]
  12. IRINOTECAN [Suspect]
     Active Substance: IRINOTECAN
     Indication: ADENOCARCINOMA OF COLON
     Dosage: DATE OF LAST ADMINISTRATION: 11-JUN-2018
     Route: 042
     Dates: start: 20180326
  13. ACETYLSALICYLIC ACID [Concomitant]
     Active Substance: ASPIRIN

REACTIONS (6)
  - Diarrhoea [Recovering/Resolving]
  - Vomiting [Recovering/Resolving]
  - Asthenia [Recovering/Resolving]
  - Hypertension [Recovering/Resolving]
  - Rectal haemorrhage [Recovering/Resolving]
  - Headache [Recovering/Resolving]

NARRATIVE: CASE EVENT DATE: 20180327
